FAERS Safety Report 16831507 (Version 2)
Quarter: 2019Q4

REPORT INFORMATION
  Report Type: Spontaneous
  Country: FR (occurrence: FR)
  Receive Date: 20190920
  Receipt Date: 20191023
  Transmission Date: 20200122
  Serious: Yes (Other)
  Sender: FDA-Public Use
  Company Number: FR-AUROBINDO-AUR-APL-2019-060608

PATIENT
  Age: 52 Year
  Sex: Female
  Weight: 50 kg

DRUGS (12)
  1. TRAMADOL. [Interacting]
     Active Substance: TRAMADOL
     Dosage: 2000 MILLIGRAM, ONCE A DAY,500 MG, QID (IF IT WAS NEEDED)
     Route: 065
  2. URBANYL [Concomitant]
     Active Substance: CLOBAZAM
     Indication: EPILEPSY
     Dosage: 2 DOSAGE FORM, ONCE A DAY (20 UNITS NOT SPECIFIED)
     Route: 048
  3. TRAMADOL. [Interacting]
     Active Substance: TRAMADOL
     Dosage: 200 MILLIGRAM, ONCE A DAY,100 MG, BID
     Route: 048
  4. BILASTINE [Concomitant]
     Active Substance: BILASTINE
     Indication: PRODUCT USED FOR UNKNOWN INDICATION
     Dosage: UNK,ONCE A DAY
     Route: 048
  5. OROZAMUDOL [Concomitant]
     Active Substance: TRAMADOL
     Indication: PRODUCT USED FOR UNKNOWN INDICATION
     Dosage: 50 OT, PRN
     Route: 048
  6. PARACETAMOL [Suspect]
     Active Substance: ACETAMINOPHEN
     Indication: PRODUCT USED FOR UNKNOWN INDICATION
     Dosage: 1000 MILLIGRAM, ONCE A DAY
     Route: 048
  7. TRAMADOL. [Interacting]
     Active Substance: TRAMADOL
     Indication: PRODUCT USED FOR UNKNOWN INDICATION
     Dosage: 100 MILLIGRAM, TWO TIMES A DAY
     Route: 065
  8. ESCITALOPRAM [Interacting]
     Active Substance: ESCITALOPRAM OXALATE
     Indication: PRODUCT USED FOR UNKNOWN INDICATION
     Dosage: 10 MG, BID
     Route: 065
     Dates: start: 201906
  9. DEPAKINE CHRONO [Concomitant]
     Active Substance: VALPROATE SODIUM
     Indication: EPILEPSY
     Dosage: 3 MILLIGRAM, ONCE A DAY (1.5 MG, BID)
     Route: 065
  10. ESCITALOPRAM [Interacting]
     Active Substance: ESCITALOPRAM OXALATE
     Dosage: 20 MILLIGRAM, ONCE A DAY,10 MG, BID
     Route: 048
     Dates: start: 20190606, end: 20190913
  11. TRAMADOL. [Interacting]
     Active Substance: TRAMADOL
     Dosage: 500 MILLIGRAM, FOUR TIMES/DAY
     Route: 065
  12. DEPAKINE CHRONO [Concomitant]
     Active Substance: VALPROATE SODIUM
     Dosage: 3 DOSAGE FORM, ONCE A DAY,1.5 DF, BID
     Route: 048

REACTIONS (10)
  - Fatigue [Unknown]
  - Hypoaesthesia [Recovering/Resolving]
  - Blood creatinine increased [Unknown]
  - Convulsive threshold lowered [Unknown]
  - Epilepsy [Recovering/Resolving]
  - Drug interaction [Unknown]
  - Malaise [Recovering/Resolving]
  - Incorrect dose administered [Unknown]
  - Blood thyroid stimulating hormone increased [Unknown]
  - Paraesthesia [Recovering/Resolving]

NARRATIVE: CASE EVENT DATE: 20190606
